FAERS Safety Report 16570797 (Version 1)
Quarter: 2019Q3

REPORT INFORMATION
  Report Type: Spontaneous
  Country: US (occurrence: US)
  Receive Date: 20190712
  Receipt Date: 20190712
  Transmission Date: 20191004
  Serious: Yes (Other)
  Sender: FDA-Public Use
  Company Number: None

PATIENT
  Age: 59 Year
  Sex: Male
  Weight: 108.18 kg

DRUGS (22)
  1. CAPECITABINE. [Suspect]
     Active Substance: CAPECITABINE
     Indication: COLON CANCER
     Route: 048
     Dates: start: 20190607, end: 20190712
  2. FLORASTOR [Concomitant]
     Active Substance: SACCHAROMYCES CEREVISIAE
  3. LORAZEPAM. [Concomitant]
     Active Substance: LORAZEPAM
  4. HUMULIN N [Concomitant]
     Active Substance: INSULIN HUMAN
  5. FUROSEMIDE. [Concomitant]
     Active Substance: FUROSEMIDE
  6. TRINTELLIX [Concomitant]
     Active Substance: VORTIOXETINE HYDROBROMIDE
  7. SILDENAFIL. [Concomitant]
     Active Substance: SILDENAFIL
  8. MIRALAX [Concomitant]
     Active Substance: POLYETHYLENE GLYCOL 3350
  9. LISINOPRIL. [Concomitant]
     Active Substance: LISINOPRIL
  10. MONTELUKAST [Concomitant]
     Active Substance: MONTELUKAST SODIUM
  11. MULTIVITAMIN [Concomitant]
     Active Substance: VITAMINS
  12. MUCINEX [Concomitant]
     Active Substance: GUAIFENESIN
  13. TESTOSTERONE. [Concomitant]
     Active Substance: TESTOSTERONE
  14. SIMETHICONE (DIMETHICONE) [Concomitant]
     Active Substance: DIMETHICONE
  15. DULOXETINE. [Concomitant]
     Active Substance: DULOXETINE
  16. ONDANSETRON [Concomitant]
     Active Substance: ONDANSETRON
  17. ADVAIR HFA [Concomitant]
     Active Substance: FLUTICASONE PROPIONATE\SALMETEROL XINAFOATE
  18. FERROUS SULFATE. [Concomitant]
     Active Substance: FERROUS SULFATE
  19. OMEPRAZOLE. [Concomitant]
     Active Substance: OMEPRAZOLE
  20. OLANZAPINE. [Concomitant]
     Active Substance: OLANZAPINE
  21. METFORMIN [Concomitant]
     Active Substance: METFORMIN HYDROCHLORIDE
  22. GABAPENTIN. [Concomitant]
     Active Substance: GABAPENTIN

REACTIONS (1)
  - Hospice care [None]

NARRATIVE: CASE EVENT DATE: 20190712
